FAERS Safety Report 23931060 (Version 4)
Quarter: 2024Q3

REPORT INFORMATION
  Report Type: Report from Study
  Country: US (occurrence: US)
  Receive Date: 20240603
  Receipt Date: 20240808
  Transmission Date: 20241016
  Serious: Yes (Other)
  Sender: JOHNSON AND JOHNSON
  Company Number: US-JNJFOC-20240568867

PATIENT
  Age: 50 Year
  Sex: Female

DRUGS (3)
  1. STELARA [Suspect]
     Active Substance: USTEKINUMAB
     Indication: Colitis ulcerative
     Route: 058
  2. STELARA [Suspect]
     Active Substance: USTEKINUMAB
  3. PREDNISONE [Suspect]
     Active Substance: PREDNISONE

REACTIONS (6)
  - Type 2 diabetes mellitus [Unknown]
  - Device issue [Unknown]
  - Weight decreased [Unknown]
  - Product dose omission issue [Unknown]
  - Accidental exposure to product [Unknown]
  - Device defective [Unknown]

NARRATIVE: CASE EVENT DATE: 20240201
